FAERS Safety Report 24684322 (Version 2)
Quarter: 2025Q1

REPORT INFORMATION
  Report Type: Spontaneous
  Country: SE (occurrence: SE)
  Receive Date: 20241202
  Receipt Date: 20250208
  Transmission Date: 20250409
  Serious: Yes (Other)
  Sender: AUROBINDO
  Company Number: SE-ORIFARM-032395

PATIENT
  Age: 35 Year
  Sex: Female

DRUGS (2)
  1. SERTRALINE [Suspect]
     Active Substance: SERTRALINE HYDROCHLORIDE
     Indication: Depression
     Route: 065
  2. SERTRALINE [Suspect]
     Active Substance: SERTRALINE HYDROCHLORIDE
     Indication: Anxiety disorder

REACTIONS (8)
  - Multiple acyl-coenzyme A dehydrogenase deficiency [Unknown]
  - Asthenia [Unknown]
  - Muscle fatigue [Unknown]
  - Muscular weakness [Unknown]
  - Myalgia [Unknown]
  - Myopathy [Unknown]
  - Peripheral sensory neuropathy [Unknown]
  - Sensory disturbance [Unknown]
